FAERS Safety Report 15801847 (Version 1)
Quarter: 2019Q1

REPORT INFORMATION
  Report Type: Spontaneous
  Country: US (occurrence: US)
  Receive Date: 20190107
  Receipt Date: 20190107
  Transmission Date: 20190417
  Serious: No
  Sender: FDA-Public Use
  Company Number: None

PATIENT

DRUGS (2)
  1. KETOROLAC TROMETHAMINE. [Suspect]
     Active Substance: KETOROLAC TROMETHAMINE
     Route: 030
  2. ADRENALIN [Suspect]
     Active Substance: EPINEPHRINE
     Dosage: INJECTION IM AND SQ
     Route: 030

REACTIONS (2)
  - Wrong product stored [None]
  - Product packaging confusion [None]
